FAERS Safety Report 17481821 (Version 2)
Quarter: 2020Q1

REPORT INFORMATION
  Report Type: Spontaneous
  Country: US (occurrence: US)
  Receive Date: 20200302
  Receipt Date: 20200305
  Transmission Date: 20200409
  Serious: No
  Sender: FDA-Public Use
  Company Number: US-JNJFOC-20200215183

PATIENT
  Sex: Male
  Weight: 79.45 kg

DRUGS (2)
  1. MENS ROGAINE EXTRA STRENGTH [Suspect]
     Active Substance: MINOXIDIL
     Indication: PRODUCT USED FOR UNKNOWN INDICATION
     Dosage: HALF A CAPFUL
     Route: 061
     Dates: start: 2020
  2. WARFARIN [Concomitant]
     Active Substance: WARFARIN
     Indication: HEART RATE INCREASED
     Route: 065

REACTIONS (5)
  - Product formulation issue [Unknown]
  - Poor quality product administered [Unknown]
  - Wrong technique in product usage process [Unknown]
  - Suspected product tampering [Unknown]
  - Product administered at inappropriate site [Unknown]

NARRATIVE: CASE EVENT DATE: 2020
